FAERS Safety Report 14752232 (Version 1)
Quarter: 2018Q2

REPORT INFORMATION
  Report Type: Spontaneous
  Country: AU (occurrence: AU)
  Receive Date: 20180412
  Receipt Date: 20180412
  Transmission Date: 20180711
  Serious: Yes (Life-Threatening, Hospitalization, Other)
  Sender: FDA-Public Use
  Company Number: AU-MYLANLABS-2018M1024504

PATIENT
  Sex: Male

DRUGS (1)
  1. DICLOFENAC [Suspect]
     Active Substance: DICLOFENAC
     Indication: BACK PAIN
     Dosage: UNK

REACTIONS (9)
  - Systemic mastocytosis [Unknown]
  - Pulseless electrical activity [Unknown]
  - Syncope [Unknown]
  - Dizziness [Unknown]
  - Loss of consciousness [Unknown]
  - Cardiac arrest [Unknown]
  - Hypotension [Unknown]
  - Tryptase increased [Unknown]
  - Presyncope [Unknown]
